FAERS Safety Report 17147724 (Version 1)
Quarter: 2019Q4

REPORT INFORMATION
  Report Type: Report from Study
  Country: US (occurrence: US)
  Receive Date: 20191212
  Receipt Date: 20191212
  Transmission Date: 20200122
  Serious: Yes (Death, Hospitalization)
  Sender: FDA-Public Use
  Company Number: US-MYLANLABS-2019M1122512

PATIENT
  Age: 86 Year
  Sex: Male

DRUGS (1)
  1. METHOTREXATE. [Suspect]
     Active Substance: METHOTREXATE
     Indication: PRODUCT USED FOR UNKNOWN INDICATION
     Route: 065

REACTIONS (7)
  - Pancytopenia [Fatal]
  - Gastrointestinal haemorrhage [Fatal]
  - Hyperthermia [Fatal]
  - Toxicity to various agents [Fatal]
  - Thrombocytopenia [Fatal]
  - Haemolysis [Fatal]
  - Coagulopathy [Fatal]
